FAERS Safety Report 9372187 (Version 1)
Quarter: 2013Q2

REPORT INFORMATION
  Report Type: Spontaneous
  Country: US (occurrence: None)
  Receive Date: 20130625
  Receipt Date: 20130625
  Transmission Date: 20140414
  Serious: Yes (Other)
  Sender: FDA-Public Use
  Company Number: PR-AE13-000661

PATIENT
  Age: 13 Year
  Sex: Female

DRUGS (1)
  1. TAGAMET [Suspect]
     Indication: OFF LABEL USE
     Route: 048
     Dates: start: 201108, end: 201109

REACTIONS (2)
  - Hiccups [None]
  - Nausea [None]
